FAERS Safety Report 14081955 (Version 1)
Quarter: 2017Q4

REPORT INFORMATION
  Report Type: Spontaneous
  Country: GB (occurrence: GB)
  Receive Date: 20171013
  Receipt Date: 20171013
  Transmission Date: 20180321
  Serious: Yes (Other)
  Sender: FDA-Public Use
  Company Number: GB-B. BRAUN MEDICAL INC.-2029944

PATIENT
  Age: 28 Year
  Sex: Female
  Weight: 59 kg

DRUGS (12)
  1. CLOTRIMAZOLE. [Concomitant]
     Active Substance: CLOTRIMAZOLE
     Dates: start: 20161007, end: 20161008
  2. PREGABALIN. [Concomitant]
     Active Substance: PREGABALIN
     Dates: start: 20160706
  3. AMOXICILLIN AND CLAVULANATE POTASSIUM [Concomitant]
     Active Substance: AMOXICILLIN\CLAVULANATE POTASSIUM
     Dates: start: 20161001, end: 20161008
  4. LAMOTRIGINE. [Concomitant]
     Active Substance: LAMOTRIGINE
     Dates: start: 20160706
  5. MORPHINE SULFATE. [Concomitant]
     Active Substance: MORPHINE SULFATE
     Dates: start: 20161017
  6. CINCHOCAINE [Concomitant]
     Dates: start: 20160930, end: 20161007
  7. NAPROXEN. [Concomitant]
     Active Substance: NAPROXEN
     Dates: start: 20161021
  8. CEFALEXIN [Concomitant]
     Active Substance: CEPHALEXIN
     Dates: start: 20160930, end: 20161007
  9. HYOSCINE BUTYLBROMIDE [Concomitant]
     Active Substance: BUTYLSCOPOLAMINE
     Dates: start: 20160706
  10. METRONIDAZOLE. [Suspect]
     Active Substance: METRONIDAZOLE
     Dates: start: 20161007
  11. BETAHISTINE [Concomitant]
     Active Substance: BETAHISTINE
     Dates: start: 20160706
  12. PICOLAX [Concomitant]
     Dates: start: 20160706

REACTIONS (2)
  - Condition aggravated [Recovered/Resolved]
  - Partial seizures [Recovered/Resolved]

NARRATIVE: CASE EVENT DATE: 20161025
